FAERS Safety Report 9468005 (Version 1)
Quarter: 2013Q3

REPORT INFORMATION
  Report Type: Spontaneous
  Country: US (occurrence: None)
  Receive Date: 20130819
  Receipt Date: 20130819
  Transmission Date: 20140515
  Serious: No
  Sender: FDA-Public Use
  Company Number: None

PATIENT
  Sex: 0

DRUGS (3)
  1. NYSTATIN [Suspect]
     Dosage: STRENGTH:  500,000 UNITS/5 ML
     Route: 048
  2. PHENYTOIN [Suspect]
     Dosage: STRENGTH:  100 MG/4 ML
     Route: 048
  3. PHENYTOIN [Suspect]
     Dosage: STRENGTH:  100 MG/ 4 ML
     Route: 048

REACTIONS (2)
  - Medication error [None]
  - Product packaging issue [None]
